FAERS Safety Report 8771528 (Version 1)
Quarter: 2012Q4

REPORT INFORMATION
  Report Type: 
  Country: GB (occurrence: GB)
  Receive Date: 20120906
  Receipt Date: 20120906
  Transmission Date: 20130627
  Serious: Yes (Other)
  Sender: FDA-Public Use
  Company Number: GB-UCBSA-064733

PATIENT
  Sex: Male

DRUGS (10)
  1. KEPPRA [Suspect]
  2. KEPPRA [Suspect]
  3. CLARITHROMYCIN [Concomitant]
     Indication: ALPHA-1 ANTI-TRYPSIN DEFICIENCY
  4. ASPIRIN [Concomitant]
     Dosage: 75 MG
  5. CALCICHEW D-3 [Concomitant]
  6. NASONEX [Concomitant]
  7. AMOROLFINE [Concomitant]
     Indication: NAIL INFECTION
  8. SYMBICORT 100/6 TURBOHALER [Concomitant]
     Indication: CHRONIC OBSTRUCTIVE PULMONARY DISEASE
     Dosage: 2 PUFFS FIRST THING IN THE MORNING
  9. PHENYTOIN [Concomitant]
  10. EZETIMIBE [Concomitant]

REACTIONS (14)
  - VIIth nerve paralysis [Unknown]
  - Transient ischaemic attack [Unknown]
  - Hypoaesthesia [Unknown]
  - Eye disorder [Unknown]
  - Dizziness [Unknown]
  - Fatigue [Unknown]
  - Depression [Unknown]
  - Somnolence [Unknown]
  - Musculoskeletal stiffness [Unknown]
  - Hypertension [Unknown]
  - Nail infection [Unknown]
  - Myalgia [Unknown]
  - Visual impairment [Unknown]
  - Lethargy [Unknown]
